FAERS Safety Report 9435259 (Version 1)
Quarter: 2013Q3

REPORT INFORMATION
  Report Type: Report from Study
  Country: JP (occurrence: JP)
  Receive Date: 20130801
  Receipt Date: 20130801
  Transmission Date: 20140515
  Serious: Yes (Other)
  Sender: FDA-Public Use
  Company Number: JP-VERTEX PHARMACEUTICALS INC-2013-008458

PATIENT
  Age: 49 Year
  Sex: Male

DRUGS (9)
  1. VX-950 (TELAPREVIR) [Suspect]
     Indication: CHRONIC HEPATITIS C
     Dosage: 2250 MG, QD
     Route: 048
     Dates: start: 20120621, end: 20120912
  2. REBETOL [Suspect]
     Indication: CHRONIC HEPATITIS C
     Dosage: 600 MG, QD
     Route: 048
     Dates: start: 20120621, end: 20120904
  3. REBETOL [Suspect]
     Dosage: 400 MG, QD
     Route: 048
     Dates: start: 20120905, end: 20120918
  4. REBETOL [Suspect]
     Dosage: 200 MG, QD
     Route: 048
     Dates: start: 20120919, end: 20121204
  5. PEGINTERFERON ALFA-2B [Suspect]
     Indication: CHRONIC HEPATITIS C
     Dosage: 1.33 ?G/KG, QW
     Route: 058
     Dates: start: 20120621
  6. PEGINTERFERON ALFA-2B [Suspect]
     Dosage: 1.5 ?G/KG, QW
     Route: 058
     Dates: start: 20120621, end: 20121128
  7. ZYLORIC [Concomitant]
     Dosage: 100 MG, QD
     Route: 048
     Dates: start: 20120612, end: 20120828
  8. ZYLORIC [Concomitant]
     Dosage: 200 MG, QD
     Route: 048
     Dates: start: 20120829, end: 20120918
  9. ZYLORIC [Concomitant]
     Dosage: 100 MG, QD
     Route: 048
     Dates: start: 20120919, end: 20121024

REACTIONS (1)
  - White blood cell count decreased [Recovered/Resolved]
